FAERS Safety Report 21115896 (Version 2)
Quarter: 2022Q3

REPORT INFORMATION
  Report Type: Spontaneous
  Country: US (occurrence: US)
  Receive Date: 20220721
  Receipt Date: 20220911
  Transmission Date: 20221027
  Serious: No
  Sender: FDA-Public Use
  Company Number: US-SANOFI-01192053

PATIENT
  Age: 7 Year
  Sex: Female
  Weight: 50 kg

DRUGS (2)
  1. CHILDREN^S ALLEGRA ALLERGY [Suspect]
     Active Substance: FEXOFENADINE HYDROCHLORIDE
     Indication: Rhinitis allergic
     Dosage: 2 ML, QD
     Route: 048
     Dates: start: 20220708, end: 20220714
  2. CHILDREN^S ALLEGRA ALLERGY [Suspect]
     Active Substance: FEXOFENADINE HYDROCHLORIDE
     Indication: Cold urticaria

REACTIONS (5)
  - Mood swings [Unknown]
  - Screaming [Recovered/Resolved]
  - Crying [Recovered/Resolved]
  - Anger [Recovered/Resolved]
  - Extra dose administered [Unknown]

NARRATIVE: CASE EVENT DATE: 20220712
